FAERS Safety Report 9228905 (Version 4)
Quarter: 2013Q2

REPORT INFORMATION
  Report Type: Report from Study
  Country: US (occurrence: US)
  Receive Date: 20130412
  Receipt Date: 20130506
  Transmission Date: 20140414
  Serious: Yes (Hospitalization)
  Sender: FDA-Public Use
  Company Number: US-ACTELION-A-NJ2013-82027

PATIENT
  Age: 62 Year
  Sex: Female

DRUGS (2)
  1. VENTAVIS [Suspect]
     Indication: PORTOPULMONARY HYPERTENSION
     Dosage: 5 UNK, MCG
     Route: 055
  2. ADCIRCA [Concomitant]

REACTIONS (5)
  - Pancreatitis [Recovered/Resolved]
  - Abdominal pain [Recovered/Resolved]
  - Nausea [Recovered/Resolved]
  - Clostridium difficile infection [Recovered/Resolved]
  - Diarrhoea [Recovered/Resolved]
